FAERS Safety Report 11277259 (Version 1)
Quarter: 2015Q3

REPORT INFORMATION
  Report Type: Report from Study
  Country: JP (occurrence: JP)
  Receive Date: 20150716
  Receipt Date: 20150716
  Transmission Date: 20151125
  Serious: Yes (Hospitalization)
  Sender: FDA-Public Use
  Company Number: JP-JNJFOC-20141112174

PATIENT
  Age: 63 Year
  Sex: Female
  Weight: 46.9 kg

DRUGS (16)
  1. AMLODIPINE [Concomitant]
     Active Substance: AMLODIPINE BESYLATE
     Indication: HYPERTENSION
     Route: 048
     Dates: start: 20140602
  2. PENTASA [Concomitant]
     Active Substance: MESALAMINE
     Indication: CROHN^S DISEASE
     Route: 048
     Dates: start: 20051128
  3. VITAMEDIN [Concomitant]
     Active Substance: CYANOCOBALAMIN\PYRIDOXINE HYDROCHLORIDE\THIAMINE
     Indication: VITAMIN B COMPLEX DEFICIENCY
     Route: 048
     Dates: start: 20080221
  4. FOSAMAC [Concomitant]
     Active Substance: ALENDRONATE SODIUM
     Indication: OSTEOPOROSIS
     Route: 048
     Dates: start: 20111229
  5. ELENTAL [Concomitant]
     Active Substance: MINERALS\VITAMINS
     Indication: CROHN^S DISEASE
     Route: 048
     Dates: start: 20140606
  6. USTEKINUMAB [Suspect]
     Active Substance: USTEKINUMAB
     Indication: CROHN^S DISEASE
     Dosage: SC BEGINNING AT WEEK 8 MAINTENANCE
     Route: 058
  7. GEBEN [Concomitant]
     Indication: DERMATITIS
     Route: 061
     Dates: start: 20110628
  8. STADERM [Concomitant]
     Indication: DERMATITIS
     Route: 061
     Dates: start: 20111126
  9. UREPEARL [Concomitant]
     Active Substance: UREA
     Route: 061
     Dates: start: 20131205
  10. USTEKINUMAB [Suspect]
     Active Substance: USTEKINUMAB
     Indication: CROHN^S DISEASE
     Route: 058
     Dates: start: 20120919
  11. USTEKINUMAB [Suspect]
     Active Substance: USTEKINUMAB
     Indication: CROHN^S DISEASE
     Dosage: IV AT WEEK 0 MAINTENANCE
     Route: 058
     Dates: start: 20121112
  12. SATOSALBE [Concomitant]
     Active Substance: ZINC OXIDE
     Indication: DERMATITIS
     Route: 061
     Dates: start: 20110614
  13. NEXIUM [Concomitant]
     Active Substance: ESOMEPRAZOLE MAGNESIUM
     Indication: GASTROINTESTINAL DISORDER THERAPY
     Route: 048
     Dates: start: 20121011
  14. PREDNISOLONE. [Concomitant]
     Active Substance: PREDNISOLONE
     Indication: CROHN^S DISEASE
     Route: 048
     Dates: start: 20120705
  15. POSTERISAN FORTE [Concomitant]
     Active Substance: LIDOCAINE
     Indication: CROHN^S DISEASE
     Route: 054
     Dates: start: 20081030
  16. LOPEMIN [Concomitant]
     Active Substance: LOPERAMIDE HYDROCHLORIDE
     Indication: DIARRHOEA
     Route: 048
     Dates: start: 20120705

REACTIONS (1)
  - Anal abscess [Recovered/Resolved]

NARRATIVE: CASE EVENT DATE: 20141111
